FAERS Safety Report 12059855 (Version 2)
Quarter: 2016Q1

REPORT INFORMATION
  Report Type: Report from Study
  Country: US (occurrence: US)
  Receive Date: 20160210
  Receipt Date: 20160216
  Transmission Date: 20160526
  Serious: Yes (Death, Other)
  Sender: FDA-Public Use
  Company Number: US-AMGEN-USASL2016015153

PATIENT
  Age: 77 Year
  Sex: Female

DRUGS (15)
  1. VITAMIN B-6 [Concomitant]
     Active Substance: PYRIDOXINE
     Dosage: 25 MG, UNK
     Route: 048
  2. MIRALAX [Concomitant]
     Active Substance: POLYETHYLENE GLYCOL 3350
     Dosage: 17 G, Q DAY PRN POWDER PACKET
     Route: 048
  3. NEULASTA [Suspect]
     Active Substance: PEGFILGRASTIM
     Dosage: UNK, Q3WK, CYCLE 2/4
     Route: 065
     Dates: start: 20150313, end: 20150522
  4. COMPAZINE [Concomitant]
     Active Substance: PROCHLORPERAZINE MALEATE
     Indication: NAUSEA
     Dosage: 10 MG, AS NECESSARY
  5. VENTOLIN HFA [Concomitant]
     Active Substance: ALBUTEROL SULFATE
     Dosage: 90 MUG, AS NECESSARY
  6. GEMZAR [Concomitant]
     Active Substance: GEMCITABINE HYDROCHLORIDE
     Dosage: 1000 MG/M2, DAY 1, 8 Q21D V1.0, CYCLE 4/4
     Dates: start: 20150306, end: 20150529
  7. ACIDOPHILUS [Concomitant]
     Active Substance: LACTOBACILLUS ACIDOPHILUS
     Dosage: 175 MG, QD
  8. MEGACE [Concomitant]
     Active Substance: MEGESTROL ACETATE
     Dosage: 400 MG/10 ML (40 MG/ML) TWO TEASPOONS PO DAILY FOR APPETITE STIMULATION
     Route: 048
  9. TRAMADOL. [Concomitant]
     Active Substance: TRAMADOL
     Indication: PAIN
     Dosage: 50 MG, 1 PO EVERY 6 HOURS PRN PAIN,
     Route: 048
  10. TAXOL [Concomitant]
     Active Substance: PACLITAXEL
     Dosage: UNK, CYCLE 4/4
     Dates: start: 20141107, end: 20150206
  11. OXYGEN. [Concomitant]
     Active Substance: OXYGEN
     Dosage: NOCTUMAL OXYGEN AND SATURATE TO PO2 GREATER THAN 90%.
  12. VITAMIN D3 [Concomitant]
     Active Substance: CHOLECALCIFEROL
     Dosage: 2000 UNIT, QD
     Route: 048
  13. NEULASTA [Suspect]
     Active Substance: PEGFILGRASTIM
     Indication: PRODUCT USED FOR UNKNOWN INDICATION
     Dosage: UNK UNK, Q3WK, CYCLE 4/4
     Route: 065
     Dates: start: 20141110, end: 20150119
  14. GAS-X [Concomitant]
     Active Substance: DIMETHICONE
     Dosage: 62.5 MG, UNK
     Route: 048
  15. ONDANSETRON HCL [Concomitant]
     Active Substance: ONDANSETRON HYDROCHLORIDE
     Indication: NAUSEA
     Dosage: 8 MG, AS NECESSARY NAUSEA

REACTIONS (2)
  - Hospice care [Unknown]
  - Malignant neoplasm progression [Fatal]

NARRATIVE: CASE EVENT DATE: 2015
